FAERS Safety Report 5340035-8 (Version None)
Quarter: 2007Q2

REPORT INFORMATION
  Report Type: 
  Country: None (occurrence: None)
  Receive Date: 20070405
  Receipt Date: 20061227
  Transmission Date: 20071010
  Serious: Yes (Other)
  Sender: FDA-Public Use
  Company Number: US200611001682

PATIENT
  Age: 41 Year
  Sex: Female
  Weight: 59 kg

DRUGS (5)
  1. CYMBALTA [Suspect]
     Indication: SURGERY
     Dosage: SEE IMAGE
     Dates: end: 20061030
  2. CYMBALTA [Suspect]
     Indication: SURGERY
     Dosage: SEE IMAGE
  3. NEXIUM [Concomitant]
  4. KADIAN [Concomitant]
  5. HYDROCODONE (HYDROCODONE) [Concomitant]

REACTIONS (1)
  - SEROTONIN SYNDROME [None]
